FAERS Safety Report 15325445 (Version 1)
Quarter: 2018Q3

REPORT INFORMATION
  Report Type: Spontaneous
  Country: ZA (occurrence: ZA)
  Receive Date: 20180828
  Receipt Date: 20180828
  Transmission Date: 20181010
  Serious: Yes (Other)
  Sender: FDA-Public Use
  Company Number: ZA-GLAXOSMITHKLINE-ZA2018GSK151558

PATIENT
  Sex: Male

DRUGS (9)
  1. ELTROXIN [Suspect]
     Active Substance: LEVOTHYROXINE
     Indication: HYPOTHYROIDISM
     Dosage: 50 UNK, UNK
     Route: 048
     Dates: start: 201802
  2. AVAMYS [Suspect]
     Active Substance: FLUTICASONE FUROATE
     Indication: RHINITIS ALLERGIC
     Dosage: 27 ?G, UNK
     Dates: start: 201806
  3. LOMANOR [Suspect]
     Active Substance: AMLODIPINE BESYLATE
     Indication: HYPERTENSION
     Dosage: 5 MG, UNK
     Route: 048
     Dates: start: 201803
  4. CO ZOMEVEK [Suspect]
     Active Substance: HYDROCHLOROTHIAZIDE\VALSARTAN
     Indication: HYPERTENSION
     Dosage: 160 MG, UNK
     Route: 048
     Dates: start: 201802
  5. CARDICOR [Suspect]
     Active Substance: BISOPROLOL
     Indication: HYPERTENSION
     Dosage: 2.5 MG, UNK
     Route: 048
     Dates: start: 201802
  6. CYMGEN [Suspect]
     Active Substance: DULOXETINE HYDROCHLORIDE
     Indication: DEPRESSION
     Dosage: 90 MG, UNK
     Route: 048
     Dates: start: 201802
  7. WARFARIN [Suspect]
     Active Substance: WARFARIN
     Indication: ANTICOAGULANT THERAPY
     Dosage: 5 MG, UNK
     Route: 048
     Dates: start: 201803
  8. TOPZOLE [Suspect]
     Active Substance: PANTOPRAZOLE SODIUM
     Indication: DYSPEPSIA
     Dosage: 20 MG, UNK
     Dates: start: 201803
  9. ASPAVOR [Suspect]
     Active Substance: ATORVASTATIN
     Indication: BLOOD CHOLESTEROL
     Dosage: 20 MG, UNK
     Route: 048
     Dates: start: 201802

REACTIONS (1)
  - Hospitalisation [Unknown]
